FAERS Safety Report 22970865 (Version 2)
Quarter: 2023Q4

REPORT INFORMATION
  Report Type: Spontaneous
  Country: FR (occurrence: FR)
  Receive Date: 20230922
  Receipt Date: 20231002
  Transmission Date: 20240109
  Serious: Yes (Other)
  Sender: FDA-Public Use
  Company Number: FR-AMGEN-FRASP2023163918

PATIENT

DRUGS (1)
  1. ADALIMUMAB [Suspect]
     Active Substance: ADALIMUMAB
     Indication: Exposure during pregnancy
     Dosage: UNK
     Route: 064

REACTIONS (15)
  - Sarcoma [Unknown]
  - Neuroblastoma [Unknown]
  - Retinoblastoma [Unknown]
  - Hepatic neoplasm [Unknown]
  - Bone cancer [Unknown]
  - Central nervous system neoplasm [Unknown]
  - Germ cell neoplasm [Unknown]
  - Neoplasm malignant [Unknown]
  - Leukaemia [Unknown]
  - Lymphoma [Unknown]
  - Malignant melanoma [Unknown]
  - Renal neoplasm [Unknown]
  - Premature baby [Unknown]
  - Large for dates baby [Unknown]
  - Low birth weight baby [Unknown]
